FAERS Safety Report 9748233 (Version 2)
Quarter: 2015Q1

REPORT INFORMATION
  Report Type: Report from Study
  Country: AT (occurrence: AT)
  Receive Date: 20131212
  Receipt Date: 20150123
  Transmission Date: 20150721
  Serious: Yes (Other)
  Sender: FDA-Public Use
  Company Number: AT-ROCHE-1311878

PATIENT
  Age: 50 Year
  Sex: Female
  Weight: 77 kg

DRUGS (1)
  1. TOCILIZUMAB [Suspect]
     Active Substance: TOCILIZUMAB
     Indication: RHEUMATOID ARTHRITIS
     Route: 042
     Dates: start: 20120615

REACTIONS (5)
  - Neurolysis [Recovered/Resolved]
  - Impaired healing [Recovered/Resolved]
  - Vertigo [Recovered/Resolved]
  - Oral herpes [Recovered/Resolved]
  - Transaminases increased [Not Recovered/Not Resolved]

NARRATIVE: CASE EVENT DATE: 20130223
